FAERS Safety Report 24153986 (Version 1)
Quarter: 2024Q3

REPORT INFORMATION
  Report Type: Spontaneous
  Country: FR (occurrence: FR)
  Receive Date: 20240730
  Receipt Date: 20240730
  Transmission Date: 20241017
  Serious: Yes (Life-Threatening)
  Sender: PURDUE
  Company Number: FR-PURDUE-USA-2024-0311041

PATIENT
  Age: 83 Year
  Sex: Male
  Weight: 60 kg

DRUGS (3)
  1. OXYCODONE HYDROCHLORIDE [Interacting]
     Active Substance: OXYCODONE HYDROCHLORIDE
     Indication: Pain
     Dosage: 10 MILLIGRAM, 1 TOTAL
     Route: 048
     Dates: start: 20240625, end: 20240625
  2. MORPHINE SULFATE [Interacting]
     Active Substance: MORPHINE SULFATE
     Indication: Pain
     Dosage: 2 DOSAGE FORM, 1 TOTAL
     Route: 048
     Dates: start: 20240625, end: 20240625
  3. SKENAN [Interacting]
     Active Substance: MORPHINE SULFATE
     Indication: Pain
     Dosage: 6 DOSAGE FORM, 1 TOTAL
     Route: 048
     Dates: start: 20240624, end: 20240625

REACTIONS (2)
  - Drug interaction [Recovered/Resolved]
  - Toxicity to various agents [Recovered/Resolved]

NARRATIVE: CASE EVENT DATE: 20240625
